FAERS Safety Report 8925536 (Version 2)
Quarter: 2012Q4

REPORT INFORMATION
  Report Type: 
  Country: None (occurrence: US)
  Receive Date: 20121126
  Receipt Date: 20121204
  Transmission Date: 20130627
  Serious: No
  Sender: FDA-Public Use
  Company Number: US-COVIDIEN/TYCO HEALTHCARE/MALLINCKRODT-T201204134

PATIENT
  Age: 54 Year
  Sex: Male

DRUGS (2)
  1. METHADONE [Suspect]
     Indication: PAIN
     Dosage: 10 mg, 6 tablets per day
     Route: 048
  2. METHADONE [Suspect]
     Dosage: Taking two 10 mg pills at a time on occasion, 12-13 extra pills per week
     Dates: start: 20121109

REACTIONS (8)
  - Intentional drug misuse [Not Recovered/Not Resolved]
  - Bradyphrenia [Not Recovered/Not Resolved]
  - Pain [Not Recovered/Not Resolved]
  - Somnolence [Not Recovered/Not Resolved]
  - Feeling abnormal [Not Recovered/Not Resolved]
  - Drug withdrawal syndrome [Recovering/Resolving]
  - Headache [Recovering/Resolving]
  - Drug effect decreased [Not Recovered/Not Resolved]
